FAERS Safety Report 5818836-9 (Version None)
Quarter: 2008Q3

REPORT INFORMATION
  Report Type: 
  Country: None (occurrence: None)
  Receive Date: 20080723
  Receipt Date: 20080721
  Transmission Date: 20090109
  Serious: Yes (Other)
  Sender: FDA-Public Use
  Company Number: TW-BRISTOL-MYERS SQUIBB COMPANY-14268908

PATIENT
  Age: 70 Year
  Sex: Male

DRUGS (2)
  1. IFOSFAMIDE [Suspect]
     Indication: SPINDLE CELL SARCOMA
     Route: 042
  2. EPIRUBICIN [Suspect]
     Indication: SPINDLE CELL SARCOMA
     Route: 042

REACTIONS (2)
  - LEUKOPENIA [None]
  - PALMAR-PLANTAR ERYTHRODYSAESTHESIA SYNDROME [None]
